FAERS Safety Report 7939813-8 (Version None)
Quarter: 2011Q4

REPORT INFORMATION
  Report Type: 
  Country: None (occurrence: None)
  Receive Date: 20111125
  Receipt Date: 20111122
  Transmission Date: 20120403
  Serious: Yes (Death, Other)
  Sender: FDA-Public Use
  Company Number: PHEH2009US03631

PATIENT
  Sex: Male
  Weight: 78 kg

DRUGS (29)
  1. TERAZOSIN HCL [Concomitant]
     Dosage: 5 MG, QHS
  2. PERCOCET [Concomitant]
     Dosage: 1 DF, Q6H
     Route: 048
  3. ASPIRIN [Concomitant]
  4. NEPHROCAPS [Concomitant]
  5. COREG [Concomitant]
  6. ATENOLOL [Concomitant]
     Dosage: 25 MG, QD
  7. TORSEMIDE [Concomitant]
  8. VANCOMYCIN [Concomitant]
     Dosage: 250 MG, QID
  9. LASIX [Concomitant]
  10. CHOLESTYRAMINE [Concomitant]
  11. PREVACID [Concomitant]
  12. LISINOPRIL [Concomitant]
     Dosage: 10 MG, QD
  13. LANSOPRAZOLE [Concomitant]
  14. LIPITOR [Concomitant]
  15. AREDIA [Suspect]
     Dosage: 500 MG, QMO
  16. LIPITOR [Concomitant]
  17. METOLAZONE [Concomitant]
     Dosage: 5 MG, BID
  18. PROCRIT [Concomitant]
     Dosage: 6000 U, QW
  19. AREDIA [Suspect]
     Dosage: 90 MG, QMO
     Route: 042
  20. ZEMPLAR [Concomitant]
  21. HEPARIN [Concomitant]
  22. PROSCAR [Concomitant]
  23. ENTOCORT EC [Concomitant]
  24. METOPROLOL TARTRATE [Concomitant]
     Dosage: 25 MG, BID
  25. FLOMAX [Concomitant]
  26. DEMADEX [Concomitant]
     Dosage: 40 MG, QD
  27. FLUCONAZOLE [Concomitant]
     Dosage: 100 MG, QD
  28. PREVACID [Concomitant]
  29. ALLOPURINOL [Concomitant]

REACTIONS (100)
  - DEATH [None]
  - HYPERTENSION [None]
  - PLEURAL EFFUSION [None]
  - AORTIC ARTERIOSCLEROSIS [None]
  - CLOSTRIDIUM DIFFICILE COLITIS [None]
  - HYPERTENSIVE HEART DISEASE [None]
  - OEDEMA PERIPHERAL [None]
  - VENOUS OCCLUSION [None]
  - DEPRESSION [None]
  - STEAL SYNDROME [None]
  - SOFT TISSUE INFLAMMATION [None]
  - ABSCESS JAW [None]
  - HIATUS HERNIA [None]
  - PRIMARY SEQUESTRUM [None]
  - JAW FRACTURE [None]
  - WEIGHT DECREASED [None]
  - SCROTAL SWELLING [None]
  - FATIGUE [None]
  - SQUAMOUS CELL CARCINOMA [None]
  - PAIN [None]
  - RENAL CYST [None]
  - ASCITES [None]
  - MYOCARDIAL INFARCTION [None]
  - FLUID OVERLOAD [None]
  - DYSPNOEA [None]
  - BACTERAEMIA [None]
  - TOOTH DISORDER [None]
  - BICYTOPENIA [None]
  - HERPES ZOSTER [None]
  - BURSITIS [None]
  - PALPITATIONS [None]
  - CALCIUM METABOLISM DISORDER [None]
  - HYPERLIPIDAEMIA [None]
  - INCREASED TENDENCY TO BRUISE [None]
  - DECREASED APPETITE [None]
  - SEBORRHOEIC KERATOSIS [None]
  - ARTHRALGIA [None]
  - RENAL FAILURE CHRONIC [None]
  - NEPHROGENIC ANAEMIA [None]
  - ATRIOVENTRICULAR BLOCK [None]
  - CHEST PAIN [None]
  - HYPERCHOLESTEROLAEMIA [None]
  - FALL [None]
  - WEIGHT INCREASED [None]
  - VISUAL IMPAIRMENT [None]
  - ACTINIC KERATOSIS [None]
  - ANXIETY [None]
  - ANHEDONIA [None]
  - ARRHYTHMIA [None]
  - CARDIOMEGALY [None]
  - LIGHT CHAIN DISEASE [None]
  - MEMORY IMPAIRMENT [None]
  - OSTEOMYELITIS [None]
  - TOOTH LOSS [None]
  - GASTROOESOPHAGEAL REFLUX DISEASE [None]
  - OTITIS EXTERNA [None]
  - LACERATION [None]
  - HAEMOPTYSIS [None]
  - DYSLIPIDAEMIA [None]
  - OSTEONECROSIS OF JAW [None]
  - JOINT SWELLING [None]
  - MULTIPLE MYELOMA [None]
  - SKIN CANCER [None]
  - ATRIAL FIBRILLATION [None]
  - ATELECTASIS [None]
  - CARDIAC FAILURE CONGESTIVE [None]
  - RENAL OSTEODYSTROPHY [None]
  - NEUROPATHY PERIPHERAL [None]
  - PROSTATOMEGALY [None]
  - LUNG NEOPLASM MALIGNANT [None]
  - GINGIVAL RECESSION [None]
  - MARROW HYPERPLASIA [None]
  - PARAPROTEINAEMIA [None]
  - IRON DEFICIENCY ANAEMIA [None]
  - PERIPHERAL VASCULAR DISORDER [None]
  - CORONARY ARTERY DISEASE [None]
  - STAPHYLOCOCCAL INFECTION [None]
  - DYSURIA [None]
  - SPLENOMEGALY [None]
  - EXPOSED BONE IN JAW [None]
  - BENIGN PROSTATIC HYPERPLASIA [None]
  - GOUT [None]
  - EAR PAIN [None]
  - INJURY [None]
  - DISABILITY [None]
  - TONGUE NEOPLASM MALIGNANT STAGE UNSPECIFIED [None]
  - SUPRAVENTRICULAR TACHYCARDIA [None]
  - BUNDLE BRANCH BLOCK RIGHT [None]
  - AMAUROSIS FUGAX [None]
  - DIVERTICULUM [None]
  - GINGIVITIS [None]
  - SLEEP APNOEA SYNDROME [None]
  - MUSCULAR WEAKNESS [None]
  - DIZZINESS [None]
  - HYPERURICAEMIA [None]
  - MONOCLONAL GAMMOPATHY [None]
  - THROAT CANCER [None]
  - HYPOTENSION [None]
  - HYPOTHERMIA [None]
  - HYPOACUSIS [None]
